FAERS Safety Report 5447311-9 (Version None)
Quarter: 2007Q3

REPORT INFORMATION
  Report Type: 
  Country: None (occurrence: None)
  Receive Date: 20070910
  Receipt Date: 20070905
  Transmission Date: 20080115
  Serious: Yes (Disabling)
  Sender: FDA-Public Use
  Company Number: IE-BAYER-200610060BNE

PATIENT
  Age: 53 Year
  Sex: Female

DRUGS (1)
  1. CIPROXIN [Suspect]
     Indication: KIDNEY INFECTION
     Route: 042

REACTIONS (9)
  - ARTHRALGIA [None]
  - ARTHRITIS REACTIVE [None]
  - JOINT SWELLING [None]
  - OEDEMA PERIPHERAL [None]
  - PAIN IN EXTREMITY [None]
  - TENDON DISORDER [None]
  - TENDON PAIN [None]
  - TENOSYNOVITIS [None]
  - WALKING DISABILITY [None]
